FAERS Safety Report 5627785-0 (Version None)
Quarter: 2008Q1

REPORT INFORMATION
  Report Type: 
  Country: None (occurrence: None)
  Receive Date: 20080215
  Receipt Date: 20080213
  Transmission Date: 20080703
  Serious: Yes (Other)
  Sender: FDA-Public Use
  Company Number: B0505422A

PATIENT
  Sex: Female

DRUGS (4)
  1. LAMICTAL [Suspect]
     Indication: DRUG USE FOR UNKNOWN INDICATION
     Dosage: 100MG PER DAY
     Route: 065
     Dates: start: 20070827
  2. CITALOPRAM HYDROBROMIDE [Concomitant]
     Dosage: 40MG PER DAY
  3. FLUOXETINE HCL [Concomitant]
     Indication: ANOREXIA
     Dosage: 40MG PER DAY
  4. PROPAVAN [Concomitant]
     Dosage: 25MG TWICE PER DAY
     Route: 065

REACTIONS (4)
  - HAIR GROWTH ABNORMAL [None]
  - LOSS OF CONSCIOUSNESS [None]
  - MENSTRUATION IRREGULAR [None]
  - NASAL CONGESTION [None]
